FAERS Safety Report 4467983-5 (Version None)
Quarter: 2004Q4

REPORT INFORMATION
  Report Type: 
  Country: None (occurrence: None)
  Receive Date: 20041004
  Receipt Date: 20040923
  Transmission Date: 20050328
  Serious: Yes (Life-Threatening, Hospitalization)
  Sender: FDA-Public Use
  Company Number: DE-2004-032445

PATIENT
  Sex: Male

DRUGS (2)
  1. FLUDARA [Suspect]
     Indication: CHRONIC LYMPHOCYTIC LEUKAEMIA
     Dosage: 30 MG/M2/D, 3 DAY CYCLE , INTRAVENOUS
     Route: 042
     Dates: start: 20040915
  2. CYCLOPHOSPHAMIDE [Suspect]
     Indication: CHRONIC LYMPHOCYTIC LEUKAEMIA
     Dosage: 250 MG/M2/D 3 DAY CYCLE, INTRAVENOUS
     Route: 042
     Dates: start: 20040915

REACTIONS (1)
  - AUTOIMMUNE THROMBOCYTOPENIA [None]
